FAERS Safety Report 9604127 (Version 2)
Quarter: 2013Q4

REPORT INFORMATION
  Report Type: Report from Study
  Country: FR (occurrence: FR)
  Receive Date: 20131008
  Receipt Date: 20131008
  Transmission Date: 20140711
  Serious: Yes (Death, Hospitalization, Other)
  Sender: FDA-Public Use
  Company Number: FR-ROCHE-GNE300948

PATIENT
  Age: 87 Year
  Sex: Male

DRUGS (2)
  1. RANIBIZUMAB [Suspect]
     Indication: AGE-RELATED MACULAR DEGENERATION
     Route: 050
     Dates: start: 20081013
  2. RANIBIZUMAB [Suspect]
     Route: 050
     Dates: start: 20081103

REACTIONS (3)
  - Respiratory distress [Fatal]
  - Road traffic accident [Unknown]
  - Mediastinum neoplasm [Unknown]
